FAERS Safety Report 19583875 (Version 2)
Quarter: 2021Q3

REPORT INFORMATION
  Report Type: Spontaneous
  Country: CH (occurrence: CH)
  Receive Date: 20210720
  Receipt Date: 20210915
  Transmission Date: 20211014
  Serious: Yes (Other)
  Sender: FDA-Public Use
  Company Number: NVSC2021CH110093

PATIENT
  Sex: Male

DRUGS (1)
  1. COSENTYX [Suspect]
     Active Substance: SECUKINUMAB
     Indication: PSORIASIS
     Dosage: UNK
     Route: 065
     Dates: start: 20150609

REACTIONS (4)
  - Hyperaesthesia teeth [Unknown]
  - Tooth fracture [Unknown]
  - Toothache [Unknown]
  - Gingival recession [Unknown]

NARRATIVE: CASE EVENT DATE: 20150615
